FAERS Safety Report 25507481 (Version 1)
Quarter: 2025Q3

REPORT INFORMATION
  Report Type: Spontaneous
  Country: US (occurrence: US)
  Receive Date: 20250703
  Receipt Date: 20250703
  Transmission Date: 20251021
  Serious: Yes (Other)
  Sender: BRISTOL-MYERS SQUIBB COMPANY
  Company Number: US-BRISTOL-MYERS SQUIBB COMPANY-2025-089648

PATIENT
  Age: 49 Year
  Sex: Female

DRUGS (1)
  1. REVLIMID [Suspect]
     Active Substance: LENALIDOMIDE
     Indication: Plasma cell myeloma
     Dosage: DAILYX21 DS OFF 7
     Route: 048
     Dates: start: 202407

REACTIONS (4)
  - Neuropathy peripheral [Unknown]
  - Brain fog [Unknown]
  - Back pain [Unknown]
  - Peripheral swelling [Unknown]
